FAERS Safety Report 8561858-8 (Version None)
Quarter: 2012Q3

REPORT INFORMATION
  Report Type: 
  Country: None (occurrence: None)
  Receive Date: 20120802
  Receipt Date: 20120709
  Transmission Date: 20120928
  Serious: No
  Sender: FDA-Public Use
  Company Number: US-AMGEN-USASP2012032875

PATIENT
  Age: 53 Year
  Sex: Male

DRUGS (2)
  1. TREXALL [Concomitant]
     Dosage: 1 MG, UNK
     Dates: start: 20110901
  2. ENBREL [Suspect]
     Indication: RHEUMATOID ARTHRITIS
     Dosage: 50 MG, QWK
     Dates: start: 20111006

REACTIONS (12)
  - STRESS [None]
  - ARTHRALGIA [None]
  - ENERGY INCREASED [None]
  - BLOOD COUNT ABNORMAL [None]
  - HYPOAESTHESIA [None]
  - OSTEOARTHRITIS [None]
  - JOINT EFFUSION [None]
  - EPISTAXIS [None]
  - COUGH [None]
  - RHEUMATOID ARTHRITIS [None]
  - SINUSITIS [None]
  - HAEMATOCRIT DECREASED [None]
